FAERS Safety Report 5623622-9 (Version None)
Quarter: 2008Q1

REPORT INFORMATION
  Report Type: 
  Country: None (occurrence: None)
  Receive Date: 20080212
  Receipt Date: 20080131
  Transmission Date: 20080703
  Serious: Yes (Other)
  Sender: FDA-Public Use
  Company Number: US-ELI_LILLY_AND_COMPANY-US200802000515

PATIENT
  Age: 53 Year
  Sex: Male

DRUGS (8)
  1. CYMBALTA [Suspect]
     Indication: PAIN
     Dosage: 60 MG, DAILY (1/D)
  2. CYCLOBENZAPRINE HCL [Interacting]
     Dosage: 10 MG, 3/D
  3. PREGABALIN [Concomitant]
     Indication: PAIN
     Dosage: 75 MG, 2/D
  4. BUPROPION HCL [Concomitant]
     Dosage: 300 MG, DAILY (1/D)
  5. OXYCODONE HCL [Concomitant]
     Indication: PAIN
     Dosage: 5 MG, AS NEEDED
  6. HYDROMORPHONE HCL [Concomitant]
     Indication: PAIN
     Dosage: 1 D/F, AS NEEDED
  7. OPIOIDS [Concomitant]
     Indication: PROCEDURAL PAIN
  8. VANCOMYCIN [Concomitant]
     Indication: INFECTION

REACTIONS (2)
  - DRUG INTERACTION [None]
  - SEROTONIN SYNDROME [None]
